FAERS Safety Report 19032838 (Version 1)
Quarter: 2021Q1

REPORT INFORMATION
  Report Type: Spontaneous
  Country: US (occurrence: US)
  Receive Date: 20210319
  Receipt Date: 20210319
  Transmission Date: 20210420
  Serious: No
  Sender: FDA-Public Use
  Company Number: US-THERAPEUTICSMD-2020TMD05759

PATIENT
  Sex: Female
  Weight: 64.41 kg

DRUGS (3)
  1. IMVEXXY [Suspect]
     Active Substance: ESTRADIOL
     Indication: VULVOVAGINAL PAIN
  2. IMVEXXY [Suspect]
     Active Substance: ESTRADIOL
     Indication: VULVOVAGINAL DRYNESS
     Dosage: 4 ?G, 2X/WEEK BEFORE BED
     Route: 067
     Dates: start: 2020
  3. ATORVASTATIN [Concomitant]
     Active Substance: ATORVASTATIN
     Dosage: UNK MG

REACTIONS (8)
  - Muscle spasms [Not Recovered/Not Resolved]
  - Bladder discomfort [Not Recovered/Not Resolved]
  - Depression [Not Recovered/Not Resolved]
  - Abdominal distension [Not Recovered/Not Resolved]
  - Off label use [Not Recovered/Not Resolved]
  - Headache [Recovered/Resolved]
  - Nausea [Recovered/Resolved]
  - Contraindicated product administered [Recovered/Resolved]

NARRATIVE: CASE EVENT DATE: 2020
